FAERS Safety Report 14420006 (Version 2)
Quarter: 2020Q1

REPORT INFORMATION
  Report Type: Spontaneous
  Country: CZ (occurrence: CZ)
  Receive Date: 20180122
  Receipt Date: 20200213
  Transmission Date: 20200409
  Serious: Yes (Other)
  Sender: FDA-Public Use
  Company Number: CZ-ARBOR PHARMACEUTICALS, LLC-CZ-2018ARB000048

PATIENT
  Sex: Male

DRUGS (1)
  1. CIPROFLOXACIN\FLUOCINOLONE ACETONIDE [Suspect]
     Active Substance: CIPROFLOXACIN\FLUOCINOLONE ACETONIDE
     Indication: PURULENT DISCHARGE
     Dosage: 4 GTT, BID
     Route: 001

REACTIONS (1)
  - Fungal infection [Recovering/Resolving]
